FAERS Safety Report 12396617 (Version 5)
Quarter: 2017Q2

REPORT INFORMATION
  Report Type: Report from Study
  Country: CA (occurrence: CA)
  Receive Date: 20160524
  Receipt Date: 20170508
  Transmission Date: 20170830
  Serious: Yes (Other)
  Sender: FDA-Public Use
  Company Number: US-JAZZ-2015-CA-016040

PATIENT
  Age: 16 Year
  Sex: Female

DRUGS (11)
  1. XYREM [Suspect]
     Active Substance: SODIUM OXYBATE
     Dosage: 3.25 G
     Route: 048
     Dates: start: 20160505, end: 2016
  2. MODAFINIL. [Concomitant]
     Active Substance: MODAFINIL
     Indication: PRODUCT USED FOR UNKNOWN INDICATION
     Dosage: 400 MG, QD
     Route: 065
  3. GABA [Concomitant]
     Active Substance: HOMEOPATHICS
     Indication: PRODUCT USED FOR UNKNOWN INDICATION
     Dosage: 125 MG, QD
     Route: 048
  4. XYREM [Suspect]
     Active Substance: SODIUM OXYBATE
     Indication: CATAPLEXY
     Dosage: UNKNOWN DOSE
     Route: 048
     Dates: start: 20150831
  5. XYREM [Suspect]
     Active Substance: SODIUM OXYBATE
     Dosage: 1.125 G, BID
     Route: 048
     Dates: start: 20150910
  6. XYREM [Suspect]
     Active Substance: SODIUM OXYBATE
     Dosage: 1.875 G, BID
     Route: 048
     Dates: start: 20160219
  7. XYREM [Suspect]
     Active Substance: SODIUM OXYBATE
     Dosage: 1.5 G, BID
     Route: 048
     Dates: start: 20160513
  8. XYREM [Suspect]
     Active Substance: SODIUM OXYBATE
     Dosage: 1.5 G, QD
     Route: 048
  9. XYREM [Suspect]
     Active Substance: SODIUM OXYBATE
     Dosage: 2.25 G, BID
     Route: 048
  10. VENTOLIN [Concomitant]
     Active Substance: ALBUTEROL SULFATE
     Indication: PRODUCT USED FOR UNKNOWN INDICATION
  11. ADVAIR HFA [Concomitant]
     Active Substance: FLUTICASONE PROPIONATE\SALMETEROL XINAFOATE
     Indication: PRODUCT USED FOR UNKNOWN INDICATION

REACTIONS (10)
  - Obsessive-compulsive disorder [Unknown]
  - Nausea [Recovered/Resolved]
  - Sensory disturbance [Recovered/Resolved]
  - Panic attack [Recovering/Resolving]
  - Incorrect dose administered [Unknown]
  - Cataplexy [Recovering/Resolving]
  - Drug dose omission [Unknown]
  - Neuralgia [Recovering/Resolving]
  - Dental operation [Recovering/Resolving]
  - Anxiety [Recovering/Resolving]

NARRATIVE: CASE EVENT DATE: 2015
